FAERS Safety Report 5227963-9 (Version None)
Quarter: 2007Q1

REPORT INFORMATION
  Report Type: 
  Country: None (occurrence: None)
  Receive Date: 20061201
  Receipt Date: 20060721
  Transmission Date: 20070707
  Serious: Yes (Hospitalization)
  Sender: FDA-Public Use
  Company Number: 2006-145748-NL

PATIENT
  Age: 21 Year
  Sex: Female
  Weight: 52.2 kg

DRUGS (3)
  1. NUVARING [Suspect]
     Indication: CONTRACEPTION
     Dosage: VAGINAL, INSERT 21 DAYS, REMOVE 7 DAYS
     Route: 067
     Dates: start: 20060101, end: 20060501
  2. NUVARING [Suspect]
     Indication: CONTRACEPTION
     Dosage: VAGINAL, INSERT 21 DAYS, REMOVE 7 DAYS
     Route: 067
     Dates: start: 20060709
  3. RELPAX [Concomitant]

REACTIONS (1)
  - PULMONARY EMBOLISM [None]
